FAERS Safety Report 18595450 (Version 7)
Quarter: 2025Q1

REPORT INFORMATION
  Report Type: Spontaneous
  Country: US (occurrence: US)
  Receive Date: 20201209
  Receipt Date: 20250318
  Transmission Date: 20250409
  Serious: Yes (Death, Hospitalization, Other)
  Sender: PFIZER
  Company Number: US-PFIZER INC-2020483220

PATIENT
  Age: 85 Year
  Sex: Male
  Weight: 70.31 kg

DRUGS (3)
  1. VYNDAMAX [Suspect]
     Active Substance: TAFAMIDIS
     Indication: Acquired ATTR amyloidosis
     Dosage: 61 MG, 1X/DAY
     Route: 048
     Dates: start: 20200128
  2. BAYER ASPIRIN [Suspect]
     Active Substance: ASPIRIN
  3. COUMADIN [Concomitant]
     Active Substance: WARFARIN SODIUM

REACTIONS (9)
  - Fall [Fatal]
  - Subdural haematoma [Fatal]
  - Mental status changes [Fatal]
  - Septic shock [Not Recovered/Not Resolved]
  - Seizure [Unknown]
  - Acute kidney injury [Unknown]
  - Renal failure [Unknown]
  - Illness [Unknown]
  - Cardiac disorder [Unknown]

NARRATIVE: CASE EVENT DATE: 20211001
